FAERS Safety Report 25025211 (Version 2)
Quarter: 2025Q4

REPORT INFORMATION
  Report Type: Report from Study
  Country: US (occurrence: US)
  Receive Date: 20250228
  Receipt Date: 20251001
  Transmission Date: 20260117
  Serious: No
  Sender: SANDOZ
  Company Number: US-SANDOZ-SDZ2025US011914

PATIENT
  Sex: Female

DRUGS (4)
  1. OMNITROPE [Suspect]
     Active Substance: SOMATROPIN
     Indication: Hypopituitarism
     Dosage: 2 MG
     Route: 058
     Dates: start: 20250221
  2. OMNITROPE [Suspect]
     Active Substance: SOMATROPIN
     Indication: Hypopituitarism
     Dosage: 2 MG
     Route: 058
     Dates: start: 20250221
  3. OMNITROPE [Suspect]
     Active Substance: SOMATROPIN
     Dosage: 2.5 MG
     Route: 065
  4. OMNITROPE [Suspect]
     Active Substance: SOMATROPIN
     Dosage: 2.5 MG
     Route: 065

REACTIONS (6)
  - Injection site haemorrhage [Unknown]
  - Injection site bruising [Unknown]
  - Product use in unapproved indication [Unknown]
  - Device breakage [Unknown]
  - Device mechanical issue [Unknown]
  - Device issue [Unknown]

NARRATIVE: CASE EVENT DATE: 20250101
